FAERS Safety Report 4928148-3 (Version None)
Quarter: 2006Q1

REPORT INFORMATION
  Report Type: 
  Country: None (occurrence: None)
  Receive Date: 20060223
  Receipt Date: 20060202
  Transmission Date: 20060701
  Serious: Yes (Disabling)
  Sender: FDA-Public Use
  Company Number: AT200602000418

PATIENT
  Age: 67 Year

DRUGS (4)
  1. FORTEO [Suspect]
     Indication: OSTEOPOROSIS
     Dosage: 20, DAILY (1/D), SUBCUTANEOUS
     Route: 058
     Dates: start: 20040701, end: 20060118
  2. FORTEO PEN (FORTEO PEN) PEN, DISPOSABLE [Concomitant]
  3. ACTIVELLE [Concomitant]
  4. METHYLPREDNISOLONE [Concomitant]

REACTIONS (1)
  - RETINAL VEIN THROMBOSIS [None]
